FAERS Safety Report 9432245 (Version 1)
Quarter: 2013Q3

REPORT INFORMATION
  Report Type: Report from Study
  Country: CA (occurrence: CA)
  Receive Date: 20130731
  Receipt Date: 20130731
  Transmission Date: 20140515
  Serious: Yes (Other)
  Sender: FDA-Public Use
  Company Number: PHHY2013CA080592

PATIENT
  Age: 21 Year
  Sex: Male

DRUGS (8)
  1. CLOZARIL [Suspect]
     Indication: SCHIZOPHRENIA
     Dosage: UNK UKN, UNK
     Dates: start: 20130708, end: 20130725
  2. ZOLOFT [Concomitant]
     Dosage: UNK UKN, UNK
  3. ATIVAN [Concomitant]
     Dosage: UNK UKN, UNK
  4. RITALIN [Concomitant]
     Dosage: UNK UKN, UNK
  5. PANTOLOC//PANTOPRAZOLE SODIUM SESQUIHYDRATE [Concomitant]
     Dosage: UNK UKN, UNK
  6. ATROPINE [Concomitant]
     Dosage: UNK UKN, UNK
  7. XANAX [Concomitant]
     Dosage: 0.5 MG, TID
  8. PROPRANOLOL [Concomitant]
     Dosage: 40 MG, BID

REACTIONS (1)
  - Mononucleosis syndrome [Recovered/Resolved]
